FAERS Safety Report 5052688-2 (Version None)
Quarter: 2006Q3

REPORT INFORMATION
  Report Type: 
  Country: None (occurrence: None)
  Receive Date: 20060717
  Receipt Date: 20060627
  Transmission Date: 20061208
  Serious: Yes (Hospitalization)
  Sender: FDA-Public Use
  Company Number: PHHO2006GB10483

PATIENT
  Age: 38 Year
  Sex: Female
  Weight: 97.8 kg

DRUGS (1)
  1. TEGASEROD [Suspect]
     Indication: IRRITABLE BOWEL SYNDROME
     Dosage: 4MG DAILY
     Route: 048
     Dates: start: 19991115, end: 20020314

REACTIONS (3)
  - ABSCESS DRAINAGE [None]
  - CELLULITIS [None]
  - PERIANAL ABSCESS [None]
